FAERS Safety Report 10072259 (Version 1)
Quarter: 2014Q2

REPORT INFORMATION
  Report Type: Spontaneous
  Country: US (occurrence: None)
  Receive Date: 20140410
  Receipt Date: 20140410
  Transmission Date: 20141212
  Serious: Yes (Other)
  Sender: FDA-Public Use
  Company Number: None

PATIENT
  Age: 70 Year
  Sex: Female

DRUGS (5)
  1. FORTEO [Suspect]
     Indication: OSTEOPOROSIS
     Route: 058
     Dates: start: 20140205, end: 20140409
  2. AMLODIPINE [Concomitant]
  3. ATORVASTATIN [Concomitant]
  4. METFORMIN [Concomitant]
  5. LEVOTHYROXINE [Concomitant]
     Indication: OSTEOPOROSIS
     Route: 058
     Dates: start: 20140205, end: 20140409

REACTIONS (1)
  - Blood potassium increased [None]
